FAERS Safety Report 5005590-6 (Version None)
Quarter: 2006Q2

REPORT INFORMATION
  Report Type: 
  Country: None (occurrence: None)
  Receive Date: 20060515
  Receipt Date: 20060501
  Transmission Date: 20061013
  Serious: Yes (Hospitalization)
  Sender: FDA-Public Use
  Company Number: 0468H-101497

PATIENT
  Age: 68 Year
  Sex: Male

DRUGS (17)
  1. RAPAMUNE [Suspect]
     Indication: PROPHYLAXIS AGAINST TRANSPLANT REJECTION
     Dosage: SEE IMAGE
     Route: 048
     Dates: start: 20050106, end: 20050101
  2. RAPAMUNE [Suspect]
     Indication: PROPHYLAXIS AGAINST TRANSPLANT REJECTION
     Dosage: SEE IMAGE
     Route: 048
     Dates: start: 20050101
  3. CELLCEPT [Suspect]
     Indication: PROPHYLAXIS AGAINST TRANSPLANT REJECTION
     Dosage: ORAL
     Route: 048
     Dates: end: 20050101
  4. PREDNISONE TAB [Suspect]
     Indication: PROPHYLAXIS AGAINST TRANSPLANT REJECTION
     Dosage: 10 MG 1X PER 1 DAY, ORAL
     Route: 048
  5. ZENAPAX [Suspect]
     Indication: PROPHYLAXIS AGAINST TRANSPLANT REJECTION
  6. LOPRESSOR [Concomitant]
  7. LASIX [Concomitant]
  8. CLONIDINE [Concomitant]
  9. NORVASC [Concomitant]
  10. FLOMAX [Concomitant]
  11. ACYCLOVIR [Concomitant]
  12. LIPITOR [Concomitant]
  13. DAPSONE [Concomitant]
  14. MACRODANTIN [Concomitant]
  15. LANTUS (INSULIN GLARGANE) [Concomitant]
  16. NOVOLOG [Concomitant]
  17. PROCRIT [Concomitant]

REACTIONS (5)
  - ATELECTASIS [None]
  - BRONCHITIS [None]
  - HEPATITIS [None]
  - OEDEMA PERIPHERAL [None]
  - PAIN [None]
